FAERS Safety Report 19394231 (Version 1)
Quarter: 2021Q2

REPORT INFORMATION
  Report Type: Spontaneous
  Country: US (occurrence: US)
  Receive Date: 20210609
  Receipt Date: 20210609
  Transmission Date: 20210717
  Serious: Yes (Other)
  Sender: FDA-Public Use
  Company Number: US-AMGEN-USASP2021087942

PATIENT
  Age: 32 Year
  Sex: Male

DRUGS (6)
  1. OTEZLA [Suspect]
     Active Substance: APREMILAST
     Indication: BEHCET^S SYNDROME
     Dosage: 30 MILLIGRAM, BID
     Route: 048
     Dates: start: 20210410
  2. DEXTROAMPHETAMINE SULFATE. [Concomitant]
     Active Substance: DEXTROAMPHETAMINE SULFATE
  3. PREGABALIN. [Concomitant]
     Active Substance: PREGABALIN
  4. BUPROPION HCL [Concomitant]
     Active Substance: BUPROPION HYDROCHLORIDE
  5. HUMIRA [Concomitant]
     Active Substance: ADALIMUMAB
  6. CLONAZEPAM. [Concomitant]
     Active Substance: CLONAZEPAM

REACTIONS (1)
  - Behcet^s syndrome [Not Recovered/Not Resolved]

NARRATIVE: CASE EVENT DATE: 202105
